FAERS Safety Report 12132448 (Version 1)
Quarter: 2016Q1

REPORT INFORMATION
  Report Type: Spontaneous
  Country: FR (occurrence: FR)
  Receive Date: 20160301
  Receipt Date: 20160301
  Transmission Date: 20160526
  Serious: Yes (Hospitalization, Other)
  Sender: FDA-Public Use
  Company Number: FR-ASTRAZENECA-2016SE19705

PATIENT
  Age: 24803 Day
  Sex: Male

DRUGS (13)
  1. PANTOPRAZOLE [Concomitant]
     Active Substance: PANTOPRAZOLE SODIUM
  2. ALDACTONE [Concomitant]
     Active Substance: SPIRONOLACTONE
  3. NATISPRAY [Concomitant]
     Active Substance: NITROGLYCERIN
     Dosage: IF FLARE
  4. BROMAZEPAM [Concomitant]
     Active Substance: BROMAZEPAM
  5. KARDEGIC [Concomitant]
     Active Substance: ASPIRIN LYSINE
     Dosage: 75 MG AT NOON
  6. METFORMIN [Concomitant]
     Active Substance: METFORMIN HYDROCHLORIDE
  7. BISOPROLOL [Concomitant]
     Active Substance: BISOPROLOL
     Dosage: 10 MG AT MORNING
  8. ZYLORIC [Concomitant]
     Active Substance: ALLOPURINOL
  9. FUROSEMIDE. [Concomitant]
     Active Substance: FUROSEMIDE
     Dosage: 40 MG AT MORNING
  10. INDAPAMIDE. [Concomitant]
     Active Substance: INDAPAMIDE
     Dosage: 1.5 MG SR AT MORNING
  11. BRILIQUE [Suspect]
     Active Substance: TICAGRELOR
     Indication: ACUTE CORONARY SYNDROME
     Route: 048
     Dates: start: 20160104, end: 20160129
  12. ROSUVASTATIN [Concomitant]
     Active Substance: ROSUVASTATIN
  13. PERINDOPRIL [Concomitant]
     Active Substance: PERINDOPRIL

REACTIONS (3)
  - Acute kidney injury [Recovering/Resolving]
  - Hyperkalaemia [Unknown]
  - Rectal adenocarcinoma [Unknown]

NARRATIVE: CASE EVENT DATE: 20160129
